FAERS Safety Report 9097585 (Version 6)
Quarter: 2013Q3

REPORT INFORMATION
  Report Type: Spontaneous
  Country: US (occurrence: US)
  Receive Date: 20130212
  Receipt Date: 20130807
  Transmission Date: 20140515
  Serious: Yes (Other)
  Sender: FDA-Public Use
  Company Number: US-PFIZER INC-2013054554

PATIENT
  Age: 85 Year
  Sex: Female
  Weight: 59.86 kg

DRUGS (3)
  1. LIPITOR [Suspect]
     Indication: BLOOD CHOLESTEROL ABNORMAL
     Dosage: 40 MG, 2X/DAY
  2. LIPITOR [Suspect]
     Indication: ARTERIAL OCCLUSIVE DISEASE
  3. ASPIRIN [Concomitant]
     Dosage: 81 MG, 1X/DAY

REACTIONS (1)
  - Hearing impaired [Not Recovered/Not Resolved]
